FAERS Safety Report 8478186-1 (Version None)
Quarter: 2012Q2

REPORT INFORMATION
  Report Type: 
  Country: None (occurrence: None)
  Receive Date: 20120629
  Receipt Date: 20120622
  Transmission Date: 20120825
  Serious: Yes (Other)
  Sender: FDA-Public Use
  Company Number: PHNR2007AU00520

PATIENT
  Sex: Male

DRUGS (4)
  1. CLOZARIL [Suspect]
     Dosage: 300 MG QD
     Route: 048
     Dates: start: 20030707, end: 20061020
  2. CLOZARIL [Suspect]
     Dosage: 50 MG - 300 MG DAILY
     Route: 048
     Dates: start: 20031107
  3. CLOZARIL [Suspect]
     Dosage: 150MG - 400MG DAILY
     Route: 048
     Dates: start: 19931019, end: 19941123
  4. CLOZARIL [Suspect]
     Dosage: 25 MG - 400 MG DAILY
     Route: 048
     Dates: start: 19941204, end: 20030605

REACTIONS (7)
  - HYPERSPLENISM [None]
  - THROMBOCYTOPENIA [None]
  - WHITE BLOOD CELL COUNT DECREASED [None]
  - AUTOIMMUNE NEUTROPENIA [None]
  - ALANINE AMINOTRANSFERASE INCREASED [None]
  - PANCYTOPENIA [None]
  - NEUTROPHIL COUNT DECREASED [None]
